FAERS Safety Report 26070071 (Version 1)
Quarter: 2025Q4

REPORT INFORMATION
  Report Type: Spontaneous
  Country: GB (occurrence: GB)
  Receive Date: 20251120
  Receipt Date: 20251120
  Transmission Date: 20260118
  Serious: Yes (Life-Threatening, Hospitalization, Other)
  Sender: MERZ
  Company Number: GB-Merz Pharmaceuticals GmbH-2025110000096

PATIENT

DRUGS (1)
  1. BOTULINUM TOXIN TYPE A [Suspect]
     Active Substance: BOTULINUM TOXIN TYPE A
     Indication: Skin cosmetic procedure

REACTIONS (2)
  - Botulism [Recovering/Resolving]
  - Condition aggravated [Recovered/Resolved]
